FAERS Safety Report 4692183-3 (Version None)
Quarter: 2005Q2

REPORT INFORMATION
  Report Type: 
  Country: None (occurrence: None)
  Receive Date: 20050614
  Receipt Date: 20050606
  Transmission Date: 20051028
  Serious: Yes (Life-Threatening)
  Sender: FDA-Public Use
  Company Number: 05FRA0125

PATIENT
  Age: 52 Year
  Sex: Female

DRUGS (10)
  1. AGGRASTAT [Suspect]
     Indication: ANGINA UNSTABLE
     Dates: start: 20050328, end: 20050329
  2. CLOPIDOGREL BISULFATE [Suspect]
     Indication: THROMBOSIS PROPHYLAXIS
     Dosage: 1DF QD
     Dates: start: 20050328
  3. HEPARIN [Suspect]
     Indication: ANGINA UNSTABLE
     Dosage: 250 MG QD
     Dates: start: 20050328, end: 20050329
  4. ACEBUTOLOL HYDROCHLORIDE (ACEBUTOLOL) [Concomitant]
  5. ACETAMINOPHEN [Concomitant]
  6. ASPIRIN [Concomitant]
  7. ESOMEPRAZOLE (ESOMEPRAZOLE) [Concomitant]
  8. ISOSORBIDE DINITRATE [Concomitant]
  9. PERINDOPRIL ERBUMINE (PERINDOPRIL ERBUMINE) [Concomitant]
  10. PRAVASTATIN NA (PRAVASTATIN SODIUM) [Concomitant]

REACTIONS (6)
  - CEREBELLAR HAEMORRHAGE [None]
  - COMA [None]
  - GENERAL PHYSICAL HEALTH DETERIORATION [None]
  - HEADACHE [None]
  - HYDROCEPHALUS [None]
  - VERTIGO [None]
